FAERS Safety Report 15681401 (Version 2)
Quarter: 2018Q4

REPORT INFORMATION
  Report Type: Spontaneous
  Country: PT (occurrence: PT)
  Receive Date: 20181203
  Receipt Date: 20181206
  Transmission Date: 20190205
  Serious: Yes (Other)
  Sender: FDA-Public Use
  Company Number: IND-PT-009507513-1811PRT010529

PATIENT
  Age: 13 Month
  Sex: Male

DRUGS (8)
  1. FENTANYL. [Concomitant]
     Active Substance: FENTANYL
     Indication: ANAESTHESIA
     Dosage: 0.02 MG
     Route: 042
     Dates: start: 20181109
  2. FENTANYL. [Concomitant]
     Active Substance: FENTANYL
     Dosage: 0.01 MG (2X)
     Dates: start: 20181109
  3. ROCURONIUM BROMIDE. [Suspect]
     Active Substance: ROCURONIUM BROMIDE
     Dosage: 2.5 MG
     Route: 042
     Dates: start: 20181109
  4. PROPOFOL. [Concomitant]
     Active Substance: PROPOFOL
     Indication: ANAESTHESIA
     Dosage: 20 MILLIGRAM
     Route: 042
     Dates: start: 20181109
  5. ATROPINE. [Concomitant]
     Active Substance: ATROPINE
     Indication: ANAESTHESIA
     Dosage: 0.15 MG
     Route: 042
     Dates: start: 20181109
  6. PROPOFOL. [Concomitant]
     Active Substance: PROPOFOL
     Dosage: 15 MG
     Route: 042
     Dates: start: 20181109
  7. ROCURONIUM BROMIDE. [Suspect]
     Active Substance: ROCURONIUM BROMIDE
     Indication: ANAESTHESIA
     Dosage: 5 MG
     Route: 042
     Dates: start: 20181109
  8. MIDAZOLAM [Concomitant]
     Active Substance: MIDAZOLAM HYDROCHLORIDE
     Indication: ANAESTHESIA
     Dosage: 0.25 MG
     Route: 042
     Dates: start: 20181109

REACTIONS (1)
  - Anaesthetic complication pulmonary [Recovered/Resolved]

NARRATIVE: CASE EVENT DATE: 20181109
